FAERS Safety Report 11076404 (Version 2)
Quarter: 2015Q2

REPORT INFORMATION
  Report Type: Spontaneous
  Country: JP (occurrence: JP)
  Receive Date: 20150429
  Receipt Date: 20150609
  Transmission Date: 20150821
  Serious: Yes (Other)
  Sender: FDA-Public Use
  Company Number: JP-JNJFOC-20150421663

PATIENT
  Age: 35 Year
  Sex: Female

DRUGS (3)
  1. REMICADE [Suspect]
     Active Substance: INFLIXIMAB
     Indication: BEHCET^S SYNDROME
     Route: 042
     Dates: start: 201102
  2. PREDNISOLONE. [Suspect]
     Active Substance: PREDNISOLONE
     Indication: BEHCET^S SYNDROME
     Route: 065
     Dates: start: 201005
  3. MIZORIBINE [Suspect]
     Active Substance: MIZORIBINE
     Indication: BEHCET^S SYNDROME
     Dosage: ON ALTERNATE DAYS
     Route: 065
     Dates: start: 201005

REACTIONS (4)
  - Osteoporosis [Unknown]
  - Compression fracture [Unknown]
  - Intervertebral disc protrusion [Unknown]
  - Spinal column stenosis [Unknown]
